FAERS Safety Report 9657740 (Version 1)
Quarter: 2013Q4

REPORT INFORMATION
  Report Type: Spontaneous
  Country: US (occurrence: US)
  Receive Date: 20131030
  Receipt Date: 20131030
  Transmission Date: 20140711
  Serious: No
  Sender: FDA-Public Use
  Company Number: US-ENDO PHARMACEUTICALS INC.-HCDA20130043

PATIENT
  Age: 52 Year
  Sex: Female

DRUGS (1)
  1. HYDROCODONE/ACETAMINOPHEN 10MG/500MG [Suspect]
     Indication: DEVELOPMENTAL HIP DYSPLASIA
     Dosage: 20/1000MG
     Route: 048

REACTIONS (1)
  - Liver function test abnormal [Unknown]
